FAERS Safety Report 7489129-1 (Version None)
Quarter: 2011Q2

REPORT INFORMATION
  Report Type: 
  Country: None (occurrence: None)
  Receive Date: 20110518
  Receipt Date: 20110504
  Transmission Date: 20111010
  Serious: Yes (Death)
  Sender: FDA-Public Use
  Company Number: CA-ELI_LILLY_AND_COMPANY-CA201105000959

PATIENT
  Sex: Male

DRUGS (8)
  1. ZYPREXA [Suspect]
     Indication: BIPOLAR DISORDER
     Dosage: 2.5 MG, QD
  2. ZYPREXA [Suspect]
     Dosage: 5 MG, EACH EVENING
  3. LITHIUM [Concomitant]
  4. LORAZEPAM [Concomitant]
  5. VALPROIC ACID [Concomitant]
  6. SEROQUEL [Concomitant]
  7. ZOLOFT [Concomitant]
     Dosage: UNK
  8. VALPROATE SODIUM [Concomitant]

REACTIONS (7)
  - NEPHROLITHIASIS [None]
  - HYPERCHOLESTEROLAEMIA [None]
  - HYPOTENSION [None]
  - COMPLETED SUICIDE [None]
  - URINARY TRACT INFECTION [None]
  - TYPE 2 DIABETES MELLITUS [None]
  - ERECTILE DYSFUNCTION [None]
